FAERS Safety Report 8391065 (Version 5)
Quarter: 2013Q2

REPORT INFORMATION
  Report Type: Spontaneous
  Country: CA (occurrence: CA)
  Receive Date: 20120206
  Receipt Date: 20130411
  Transmission Date: 20140414
  Serious: Yes (Hospitalization, Other)
  Sender: FDA-Public Use
  Company Number: CA-JNJFOC-20120200882

PATIENT
  Age: 40 Year
  Sex: Female
  Weight: 62 kg

DRUGS (6)
  1. REMICADE [Suspect]
     Indication: CROHN^S DISEASE
     Route: 042
  2. REMICADE [Suspect]
     Indication: CROHN^S DISEASE
     Route: 042
     Dates: start: 20120112
  3. REMICADE [Suspect]
     Indication: CROHN^S DISEASE
     Route: 042
     Dates: start: 201201
  4. TYLENOL [Concomitant]
     Route: 065
  5. IMURAN [Concomitant]
     Route: 048
  6. ENTOCORT [Concomitant]
     Route: 065

REACTIONS (7)
  - Gastrointestinal obstruction [Unknown]
  - Intestinal obstruction [Recovered/Resolved]
  - Crohn^s disease [Unknown]
  - Haemorrhage [Unknown]
  - Haematemesis [Unknown]
  - Haemoglobin decreased [Unknown]
  - Volvulus of small bowel [Unknown]
